FAERS Safety Report 7471696-5 (Version None)
Quarter: 2011Q2

REPORT INFORMATION
  Report Type: 
  Country: None (occurrence: None)
  Receive Date: 20110502
  Receipt Date: 20110419
  Transmission Date: 20111010
  Serious: Yes (Life-Threatening, Other)
  Sender: FDA-Public Use
  Company Number: ALA_02168_2011

PATIENT
  Sex: Female

DRUGS (10)
  1. METOCLOPRAMIDE [Suspect]
     Indication: NAUSEA
     Dosage: (PRN ORAL)
     Route: 048
     Dates: start: 20110223, end: 20110224
  2. METOCLOPRAMIDE [Suspect]
     Indication: VOMITING
     Dosage: (PRN ORAL)
     Route: 048
     Dates: start: 20110223, end: 20110224
  3. BLINDED STUDY DRUG [Suspect]
     Indication: DEPRESSION
     Dosage: (20 MG QD ORAL) ; (40 MG QD ORAL) ; (80 MG QD ORAL) ; (40 MG QD ORAL) ; (DF ORAL)
     Route: 048
     Dates: start: 20100907, end: 20110218
  4. BLINDED STUDY DRUG [Suspect]
     Indication: DEPRESSION
     Dosage: (20 MG QD ORAL) ; (40 MG QD ORAL) ; (80 MG QD ORAL) ; (40 MG QD ORAL) ; (DF ORAL)
     Route: 048
     Dates: start: 20100630, end: 20100706
  5. BLINDED STUDY DRUG [Suspect]
     Indication: DEPRESSION
     Dosage: (20 MG QD ORAL) ; (40 MG QD ORAL) ; (80 MG QD ORAL) ; (40 MG QD ORAL) ; (DF ORAL)
     Route: 048
     Dates: start: 20100710, end: 20100906
  6. BLINDED STUDY DRUG [Suspect]
     Indication: DEPRESSION
     Dosage: (20 MG QD ORAL) ; (40 MG QD ORAL) ; (80 MG QD ORAL) ; (40 MG QD ORAL) ; (DF ORAL)
     Route: 048
     Dates: start: 20100707, end: 20100708
  7. BLINDED STUDY DRUG [Suspect]
     Indication: DEPRESSION
     Dosage: (20 MG QD ORAL) ; (40 MG QD ORAL) ; (80 MG QD ORAL) ; (40 MG QD ORAL) ; (DF ORAL)
     Route: 048
     Dates: start: 20100628, end: 20100629
  8. PENICILLIN [Suspect]
     Indication: TONSILLITIS
     Dosage: (500 MG BID ORAL)
     Route: 048
     Dates: start: 20110223, end: 20110227
  9. ADVIL LIQUI-GELS [Concomitant]
  10. NAPROXEN (ALEVE) [Concomitant]

REACTIONS (11)
  - INFUSION SITE ERYTHEMA [None]
  - INFUSION SITE PAIN [None]
  - VIRAL INFECTION [None]
  - JOINT STIFFNESS [None]
  - INFUSION SITE HAEMATOMA [None]
  - DEEP VEIN THROMBOSIS [None]
  - MUSCLE SPASMS [None]
  - TONGUE DISORDER [None]
  - TONSILLITIS [None]
  - DYSTONIA [None]
  - ANAPHYLACTIC SHOCK [None]
